FAERS Safety Report 15579592 (Version 1)
Quarter: 2018Q4

REPORT INFORMATION
  Report Type: Spontaneous
  Country: GB (occurrence: GB)
  Receive Date: 20181102
  Receipt Date: 20181102
  Transmission Date: 20190205
  Serious: Yes (Other)
  Sender: FDA-Public Use
  Company Number: GB-JNJFOC-20181101754

PATIENT
  Age: 40 Year

DRUGS (1)
  1. XARELTO [Suspect]
     Active Substance: RIVAROXABAN
     Indication: CARDIAC SEPTAL DEFECT
     Route: 048

REACTIONS (3)
  - Cerebrovascular accident [Unknown]
  - Product use in unapproved indication [Unknown]
  - Off label use [Unknown]
